FAERS Safety Report 7551608-6 (Version None)
Quarter: 2011Q2

REPORT INFORMATION
  Report Type: 
  Country: None (occurrence: None)
  Receive Date: 20110616
  Receipt Date: 20110607
  Transmission Date: 20111010
  Serious: Yes (Death, Other)
  Sender: FDA-Public Use
  Company Number: FR-CELGENEUS-056-50794-11061481

PATIENT
  Age: 80 Year
  Sex: Male

DRUGS (2)
  1. VIDAZA [Suspect]
     Route: 065
  2. VIDAZA [Suspect]

REACTIONS (2)
  - ACUTE MYELOID LEUKAEMIA [None]
  - HEPATITIS E [None]
